FAERS Safety Report 14920168 (Version 2)
Quarter: 2018Q2

REPORT INFORMATION
  Report Type: Spontaneous
  Country: US (occurrence: US)
  Receive Date: 20180521
  Receipt Date: 20180522
  Transmission Date: 20180711
  Serious: No
  Sender: FDA-Public Use
  Company Number: US-PFIZER INC-2018202675

PATIENT
  Age: 81 Year
  Sex: Male
  Weight: 86.62 kg

DRUGS (2)
  1. REMICADE [Concomitant]
     Active Substance: INFLIXIMAB
     Dosage: UNK (INFUSED ONCE EVERY 8 WEEKS AND THAT 432 GM OR MG)
  2. VANCOMYCIN HCL [Suspect]
     Active Substance: VANCOMYCIN HYDROCHLORIDE
     Indication: CONDITION AGGRAVATED
     Dosage: UNK, TWICE A DAY FOR 6 DAYS
     Route: 042

REACTIONS (1)
  - Rash generalised [Not Recovered/Not Resolved]
